FAERS Safety Report 18587667 (Version 2)
Quarter: 2022Q1

REPORT INFORMATION
  Report Type: Report from Study
  Country: US (occurrence: US)
  Receive Date: 20201207
  Receipt Date: 20220204
  Transmission Date: 20220423
  Serious: Yes (Other)
  Sender: FDA-Public Use
  Company Number: US-TAKEDA-2015US004580

PATIENT
  Sex: Female
  Weight: 64 kg

DRUGS (3)
  1. PONATINIB [Suspect]
     Active Substance: PONATINIB
     Indication: Chronic myeloid leukaemia
     Dosage: 45 MILLIGRAM, QD
     Route: 048
     Dates: start: 20150210
  2. PONATINIB [Suspect]
     Active Substance: PONATINIB
     Indication: Breast cancer female
     Dosage: 30 MILLIGRAM, QD
     Route: 065
     Dates: start: 201901
  3. PONATINIB [Suspect]
     Active Substance: PONATINIB
     Dosage: 15 MILLIGRAM
     Route: 065

REACTIONS (13)
  - Loss of consciousness [Not Recovered/Not Resolved]
  - Diabetes mellitus [Unknown]
  - Accident [Not Recovered/Not Resolved]
  - Fall [Not Recovered/Not Resolved]
  - Sinus disorder [Unknown]
  - Visual impairment [Not Recovered/Not Resolved]
  - Multiple allergies [Not Recovered/Not Resolved]
  - Laboratory test abnormal [Recovering/Resolving]
  - Influenza [Recovering/Resolving]
  - Pancreatic enzymes abnormal [Recovered/Resolved]
  - Rash pruritic [Not Recovered/Not Resolved]
  - Fatigue [Not Recovered/Not Resolved]
  - Off label use [Unknown]
